FAERS Safety Report 9854253 (Version 1)
Quarter: 2014Q1

REPORT INFORMATION
  Report Type: Report from Study
  Country: BE (occurrence: BE)
  Receive Date: 20140130
  Receipt Date: 20140130
  Transmission Date: 20141002
  Serious: Yes (Death)
  Sender: FDA-Public Use
  Company Number: BE-ROCHE-1339234

PATIENT
  Age: 60 Year
  Sex: 0

DRUGS (4)
  1. AVASTIN [Suspect]
     Indication: GLIOBLASTOMA
     Route: 065
     Dates: start: 20120523
  2. AVASTIN [Suspect]
     Route: 065
     Dates: start: 20120620
  3. METHYLPREDNISOLONE [Suspect]
     Indication: PRODUCT USED FOR UNKNOWN INDICATION
     Route: 065
  4. METHYLPREDNISOLONE [Suspect]
     Route: 065

REACTIONS (2)
  - Paraesthesia [Fatal]
  - Paraesthesia [Fatal]
